FAERS Safety Report 10007940 (Version 1)
Quarter: 2014Q1

REPORT INFORMATION
  Report Type: Spontaneous
  Country: DE (occurrence: DE)
  Receive Date: 20140313
  Receipt Date: 20140313
  Transmission Date: 20141002
  Serious: Yes (Death, Hospitalization, Other)
  Sender: FDA-Public Use
  Company Number: PHHY2014DE027635

PATIENT
  Age: 70 Year
  Sex: Male

DRUGS (7)
  1. GLIBENCLAMIDE [Suspect]
     Indication: DIABETES MELLITUS
     Dosage: 3.5 MG, BID
     Dates: start: 201110
  2. NEXAVAR [Interacting]
     Indication: HEPATOCELLULAR CARCINOMA
     Dosage: 800 MG (400 MG AT 08:00 AND 18:30, RESPECTIVELY)
     Dates: start: 201201
  3. PROPRANOLOL [Concomitant]
  4. RAMIPRIL [Concomitant]
  5. TORASEMIDE [Concomitant]
  6. AMLODIPIN//AMLODIPINE [Concomitant]
  7. NOVAMINSULFON [Concomitant]

REACTIONS (7)
  - Portal vein thrombosis [Fatal]
  - Hepatorenal syndrome [Unknown]
  - Hepatic encephalopathy [Unknown]
  - Hypoglycaemia [Recovered/Resolved]
  - Disorientation [Recovered/Resolved]
  - Somnolence [Recovered/Resolved]
  - Drug interaction [Unknown]
